FAERS Safety Report 11329783 (Version 1)
Quarter: 2015Q3

REPORT INFORMATION
  Report Type: Spontaneous
  Country: US (occurrence: None)
  Receive Date: 20150730
  Receipt Date: 20150730
  Transmission Date: 20151125
  Serious: No
  Sender: FDA-Public Use
  Company Number: None

PATIENT
  Age: 46 Year
  Sex: Male

DRUGS (10)
  1. LORAZEPAM. [Concomitant]
     Active Substance: LORAZEPAM
  2. PYRIDOXINE [Concomitant]
     Active Substance: PYRIDOXINE
  3. PIPERACILLIN/TAZOABCTAM [Concomitant]
  4. VORICONAZOLE. [Suspect]
     Active Substance: VORICONAZOLE
     Indication: FEBRILE NEUTROPENIA
     Route: 048
     Dates: start: 20150212, end: 20150218
  5. EMTRICITABINE + TENOFOVIR [Concomitant]
     Active Substance: EMTRICITABINE\TENOFOVIR
  6. ACYCLOVIR. [Concomitant]
     Active Substance: ACYCLOVIR
  7. TEMAZEPAM. [Concomitant]
     Active Substance: TEMAZEPAM
  8. PROCHLORPERAZINE. [Concomitant]
     Active Substance: PROCHLORPERAZINE
  9. VANCOMYCIN [Concomitant]
     Active Substance: VANCOMYCIN
  10. TACROLIMUS. [Concomitant]
     Active Substance: TACROLIMUS

REACTIONS (3)
  - Dysphagia [None]
  - Feeling abnormal [None]
  - Headache [None]

NARRATIVE: CASE EVENT DATE: 20150214
